FAERS Safety Report 8959013 (Version 1)
Quarter: 2012Q4

REPORT INFORMATION
  Report Type: 
  Country: BR (occurrence: BR)
  Receive Date: 20121212
  Receipt Date: 20121212
  Transmission Date: 20130627
  Serious: Yes (Other)
  Sender: FDA-Public Use
  Company Number: BR-SANOFI-AVENTIS-2012SA044060

PATIENT
  Age: 34 Year
  Sex: Female
  Weight: 62 kg

DRUGS (2)
  1. CLEXANE [Suspect]
     Indication: THROMBOPHILIA
     Route: 058
     Dates: start: 201201, end: 20120928
  2. MULTIVITAMINS [Concomitant]
     Indication: VITAMIN SUPPLEMENTATION
     Route: 048
     Dates: start: 201204

REACTIONS (2)
  - Umbilical cord around neck [Recovered/Resolved]
  - Exposure during pregnancy [Unknown]
